FAERS Safety Report 6252196-7 (Version None)
Quarter: 2009Q2

REPORT INFORMATION
  Report Type: 
  Country: None (occurrence: None)
  Receive Date: 20090629
  Receipt Date: 20090619
  Transmission Date: 20091009
  Serious: Yes (Other)
  Sender: FDA-Public Use
  Company Number: 2009US000351

PATIENT
  Age: 56 Year
  Sex: Male

DRUGS (6)
  1. AMBISOME [Suspect]
     Indication: PNEUMONIA
     Dosage: 150 MG, UID/QD, IV NOS
     Route: 042
     Dates: start: 20080222, end: 20080223
  2. PRODIF (FOSFLUCONAZOLE) [Concomitant]
  3. VFEND [Concomitant]
  4. MEROPEN (MEROPENEM TRIHYDRATE) [Concomitant]
  5. MAXIPIME [Concomitant]
  6. UNASYN (AMPICILLIN SODIUM) [Concomitant]

REACTIONS (2)
  - BLOOD PRESSURE DECREASED [None]
  - PYREXIA [None]
